FAERS Safety Report 25148325 (Version 1)
Quarter: 2025Q2

REPORT INFORMATION
  Report Type: Spontaneous
  Country: GB (occurrence: GB)
  Receive Date: 20250402
  Receipt Date: 20250402
  Transmission Date: 20250717
  Serious: Yes (Death, Hospitalization, Other)
  Sender: AUROBINDO
  Company Number: GB-HALEON-2233732

PATIENT
  Sex: Male

DRUGS (2)
  1. ACETAMINOPHEN [Suspect]
     Active Substance: ACETAMINOPHEN
     Indication: Pain
     Route: 065
  2. ACETAMINOPHEN [Suspect]
     Active Substance: ACETAMINOPHEN
     Indication: Pyrexia

REACTIONS (7)
  - Cardiac arrest [Fatal]
  - Coma [Unknown]
  - Pain [Unknown]
  - Pyrexia [Unknown]
  - Condition aggravated [Unknown]
  - Dyspnoea [Unknown]
  - Swelling [Unknown]
